FAERS Safety Report 18552125 (Version 1)
Quarter: 2020Q4

REPORT INFORMATION
  Report Type: Report from Study
  Country: None (occurrence: DE)
  Receive Date: 20201126
  Receipt Date: 20201126
  Transmission Date: 20210114
  Serious: Yes (Hospitalization)
  Sender: FDA-Public Use
  Company Number: DE-ABBVIE-20K-062-3658308-00

PATIENT
  Age: 31 Year
  Sex: Female

DRUGS (6)
  1. IXEKIZUMAB [Suspect]
     Active Substance: IXEKIZUMAB
     Indication: PSORIATIC ARTHROPATHY
     Dosage: 4 MG, MONTHLY (1/M)
     Route: 058
     Dates: start: 20200520, end: 20200813
  2. IXEKIZUMAB [Suspect]
     Active Substance: IXEKIZUMAB
     Dosage: 2 MG, 2/M
     Route: 058
     Dates: start: 20200909
  3. MTX [Concomitant]
     Active Substance: METHOTREXATE SODIUM
     Dosage: 5 MG, WEEKLY (1/W)
     Dates: start: 20200911
  4. OLUMIANT [Suspect]
     Active Substance: BARICITINIB
     Indication: PRODUCT USED FOR UNKNOWN INDICATION
     Dosage: 4 MG, DAILY
     Route: 065
     Dates: start: 20200526, end: 20200829
  5. RINVOQ [Suspect]
     Active Substance: UPADACITINIB
     Indication: PRODUCT USED FOR UNKNOWN INDICATION
     Dosage: 30 MG
     Route: 048
     Dates: start: 20200916
  6. MTX [Concomitant]
     Active Substance: METHOTREXATE SODIUM
     Indication: PRODUCT USED FOR UNKNOWN INDICATION
     Dosage: 5 MG, WEEKLY (1/W)
     Dates: start: 20200522, end: 20200820

REACTIONS (2)
  - Candida infection [Not Recovered/Not Resolved]
  - Oesophageal candidiasis [Not Recovered/Not Resolved]

NARRATIVE: CASE EVENT DATE: 20200921
